FAERS Safety Report 24899899 (Version 1)
Quarter: 2025Q1

REPORT INFORMATION
  Report Type: Spontaneous
  Country: US (occurrence: None)
  Receive Date: 20250129
  Receipt Date: 20250129
  Transmission Date: 20250408
  Serious: Yes (Other)
  Sender: FDA-CTU
  Company Number: None

PATIENT
  Age: 16 Year
  Sex: Female

DRUGS (3)
  1. INJECTAFER [Suspect]
     Active Substance: FERRIC CARBOXYMALTOSE
     Indication: Serum ferritin decreased
     Dates: start: 20240930, end: 20240930
  2. PHOSPHORUS [Concomitant]
     Active Substance: PHOSPHORUS
  3. VITAMIN D3 [Concomitant]
     Active Substance: CHOLECALCIFEROL

REACTIONS (4)
  - Hypophosphataemia [None]
  - Chest pain [None]
  - Malaise [None]
  - Withdrawal syndrome [None]

NARRATIVE: CASE EVENT DATE: 20240930
